FAERS Safety Report 5103621-6 (Version None)
Quarter: 2006Q3

REPORT INFORMATION
  Report Type: 
  Country: None (occurrence: None)
  Receive Date: 20060911
  Receipt Date: 20060911
  Transmission Date: 20061208
  Serious: Yes (Hospitalization)
  Sender: FDA-Public Use
  Company Number: None

PATIENT
  Age: 20 Year
  Sex: Male
  Weight: 68.1 kg

DRUGS (1)
  1. TOPAMAX [Suspect]
     Dosage: 25MG  Q12H   PO
     Route: 048
     Dates: start: 20060418, end: 20060619

REACTIONS (2)
  - CALCULUS BLADDER [None]
  - CRYSTAL URINE PRESENT [None]
